FAERS Safety Report 24168395 (Version 1)
Quarter: 2024Q3

REPORT INFORMATION
  Report Type: Spontaneous
  Country: CA (occurrence: CA)
  Receive Date: 20240802
  Receipt Date: 20240802
  Transmission Date: 20241016
  Serious: Yes (Other)
  Sender: BAYER
  Company Number: CA-BAYER-2024A109863

PATIENT
  Age: 62 Year
  Sex: Male

DRUGS (12)
  1. CIPROFLOXACIN [Suspect]
     Active Substance: CIPROFLOXACIN
  2. PREDNISONE [Suspect]
     Active Substance: PREDNISONE
  3. FLUTICASONE PROPIONATE\SALMETEROL XINAFOATE [Suspect]
     Active Substance: FLUTICASONE PROPIONATE\SALMETEROL XINAFOATE
  4. OLANZAPINE [Suspect]
     Active Substance: OLANZAPINE
  5. AMOXICILLIN AND CLAVULANATE POTASSIUM [Suspect]
     Active Substance: AMOXICILLIN\CLAVULANATE POTASSIUM
  6. HYDROMORPHONE [Suspect]
     Active Substance: HYDROMORPHONE
  7. AMLODIPINE [Suspect]
     Active Substance: AMLODIPINE BESYLATE
  8. ALBUTEROL SULFATE [Suspect]
     Active Substance: ALBUTEROL SULFATE
  9. ROSUVASTATIN [Suspect]
     Active Substance: ROSUVASTATIN\ROSUVASTATIN CALCIUM
     Route: 058
  10. SENNOSIDES [Suspect]
     Active Substance: SENNOSIDES
  11. PANTOPRAZOLE [Suspect]
     Active Substance: PANTOPRAZOLE
  12. CANDESARTAN [Suspect]
     Active Substance: CANDESARTAN

REACTIONS (1)
  - Febrile neutropenia [None]
